FAERS Safety Report 13019151 (Version 1)
Quarter: 2016Q4

REPORT INFORMATION
  Report Type: Spontaneous
  Country: US (occurrence: US)
  Receive Date: 20161212
  Receipt Date: 20161212
  Transmission Date: 20170207
  Serious: No
  Sender: FDA-Public Use
  Company Number: US-ROCHE-1644662

PATIENT
  Age: 63 Year
  Sex: Male

DRUGS (1)
  1. LUCENTIS [Suspect]
     Active Substance: RANIBIZUMAB
     Indication: DIABETIC RETINAL OEDEMA
     Route: 050
     Dates: start: 20140829

REACTIONS (3)
  - Vision blurred [Recovered/Resolved]
  - Visual impairment [Unknown]
  - Cataract [Unknown]

NARRATIVE: CASE EVENT DATE: 201411
